FAERS Safety Report 19687690 (Version 1)
Quarter: 2021Q3

REPORT INFORMATION
  Report Type: Spontaneous
  Country: US (occurrence: US)
  Receive Date: 20210811
  Receipt Date: 20210811
  Transmission Date: 20211014
  Serious: No
  Sender: FDA-Public Use
  Company Number: US-PFIZER INC-2021513679

PATIENT
  Age: 65 Year
  Sex: Female
  Weight: 61.22 kg

DRUGS (4)
  1. LETROZOLE. [Concomitant]
     Active Substance: LETROZOLE
     Dosage: UNK
  2. CALTRATE WITH VITAMIN D [Concomitant]
     Active Substance: CALCIUM CARBONATE\CHOLECALCIFEROL
     Dosage: UNK
  3. IBRANCE [Suspect]
     Active Substance: PALBOCICLIB
     Indication: BREAST CANCER FEMALE
     Dosage: 125 MG, DAILY/ 21 DAYS
     Route: 048
     Dates: start: 20210114
  4. XANAX [Concomitant]
     Active Substance: ALPRAZOLAM
     Dosage: UNK

REACTIONS (1)
  - White blood cell count decreased [Unknown]
